FAERS Safety Report 24989413 (Version 2)
Quarter: 2025Q1

REPORT INFORMATION
  Report Type: Report from Study
  Country: PE (occurrence: PE)
  Receive Date: 20250220
  Receipt Date: 20250227
  Transmission Date: 20250408
  Serious: Yes (Hospitalization, Other)
  Sender: AMGEN
  Company Number: PE-AMGEN-PERSL2025033836

PATIENT
  Age: 61 Year
  Sex: Female

DRUGS (1)
  1. ADALIMUMAB [Suspect]
     Active Substance: ADALIMUMAB
     Indication: Rheumatoid arthritis
     Dosage: 40 MILLIGRAM, Q2WK (EVERY 15 DAYS/15.00 DAYS)
     Route: 058
     Dates: start: 20230518

REACTIONS (1)
  - Systemic infection [Recovered/Resolved]

NARRATIVE: CASE EVENT DATE: 20250124
